FAERS Safety Report 9548917 (Version 1)
Quarter: 2013Q3

REPORT INFORMATION
  Report Type: Spontaneous
  Country: US (occurrence: US)
  Receive Date: 20130924
  Receipt Date: 20130924
  Transmission Date: 20140515
  Serious: No
  Sender: FDA-Public Use
  Company Number: US-009507513-1207USA003635

PATIENT
  Age: 22 Year
  Sex: Female

DRUGS (1)
  1. IMPLANON [Suspect]
     Indication: CONTRACEPTION
     Dosage: 68 MG, UNKNOWN
     Route: 059
     Dates: start: 2010, end: 201111

REACTIONS (3)
  - Raynaud^s phenomenon [Recovered/Resolved]
  - Hypoaesthesia [Recovered/Resolved]
  - Paraesthesia [Recovered/Resolved]
